FAERS Safety Report 24681136 (Version 3)
Quarter: 2024Q4

REPORT INFORMATION
  Report Type: Spontaneous
  Country: US (occurrence: US)
  Receive Date: 20241129
  Receipt Date: 20241230
  Transmission Date: 20250115
  Serious: No
  Sender: SANOFI AVENTIS
  Company Number: US-SA-2024SA348930

PATIENT
  Age: 60 Year
  Sex: Male

DRUGS (40)
  1. DUPIXENT [Suspect]
     Active Substance: DUPILUMAB
     Indication: Asthma
     Dosage: 600 MG, 1X
     Route: 058
     Dates: start: 20241004, end: 20241004
  2. DUPIXENT [Suspect]
     Active Substance: DUPILUMAB
     Dosage: 300 MG, QOW
     Route: 058
     Dates: start: 202410
  3. HYDROCHLOROTHIAZIDE [Suspect]
     Active Substance: HYDROCHLOROTHIAZIDE
     Dosage: UNK
  4. ALBUTEROL SULFATE [Concomitant]
     Active Substance: ALBUTEROL SULFATE
     Dosage: UNK
  5. AMOXICILLIN [Concomitant]
     Active Substance: AMOXICILLIN
     Dosage: UNK
  6. ARFORMOTEROL [Concomitant]
     Active Substance: ARFORMOTEROL
     Dosage: UNK
  7. ATORVASTATIN [Concomitant]
     Active Substance: ATORVASTATIN
     Dosage: UNK
  8. AZITHROMYCIN [Concomitant]
     Active Substance: AZITHROMYCIN
     Dosage: UNK
  9. BUDESONIDE [Concomitant]
     Active Substance: BUDESONIDE
     Dosage: UNK
  10. GLIPIZIDE [Concomitant]
     Active Substance: GLIPIZIDE
     Dosage: UNK
  11. GUAIFENESIN [Concomitant]
     Active Substance: GUAIFENESIN
     Dosage: UNK
  12. IPRATROPIUM [Concomitant]
     Active Substance: IPRATROPIUM
     Dosage: UNK
  13. LEVOCETIRIZINE [Concomitant]
     Active Substance: LEVOCETIRIZINE
     Dosage: UNK
  14. LOSARTAN POTASSIUM [Concomitant]
     Active Substance: LOSARTAN POTASSIUM
     Dosage: UNK
  15. MAGNESIUM OXIDE [Concomitant]
     Active Substance: MAGNESIUM OXIDE
     Dosage: UNK
  16. MONTELUKAST [Concomitant]
     Active Substance: MONTELUKAST SODIUM
     Dosage: UNK
  17. PAXLOVID [Concomitant]
     Active Substance: NIRMATRELVIR\RITONAVIR
     Dosage: UNK
  18. PREDNISONE [Concomitant]
     Active Substance: PREDNISONE
     Dosage: UNK
  19. ROFLUMILAST [Concomitant]
     Active Substance: ROFLUMILAST
     Dosage: UNK
  20. SPIRIVA [Concomitant]
     Active Substance: TIOTROPIUM BROMIDE MONOHYDRATE
     Dosage: UNK
  21. SPIRONOLACTONE [Concomitant]
     Active Substance: SPIRONOLACTONE
     Dosage: UNK
  22. SPIRIVA RESPIMAT [Concomitant]
     Active Substance: TIOTROPIUM BROMIDE
     Dosage: 2DF; QD
     Route: 055
     Dates: start: 20231226
  23. DELTASONE [Concomitant]
     Active Substance: PREDNISONE
     Dosage: TAKE 4 TABLETS BY MOUTH DAILY FOR 3 DAYS, THEN 3 TABLETS DAILY FOR 3 DAYS, THEN 2 TABLETS DAILY FOR
     Route: 048
     Dates: start: 20241011, end: 20241202
  24. MICROZIDE [Concomitant]
     Active Substance: HYDROCHLOROTHIAZIDE
     Dosage: 1DF; QD
     Route: 048
     Dates: start: 20240628, end: 20241202
  25. PULMICORT TURBUHALER [Concomitant]
     Active Substance: BUDESONIDE
     Dosage: 0.5 MG/2 ML BID
     Route: 055
     Dates: start: 20231116
  26. SINGULAIR [Concomitant]
     Active Substance: MONTELUKAST SODIUM
     Dosage: 1DF; QD
     Route: 048
     Dates: start: 20240628, end: 20241125
  27. ALBUTEROL\IPRATROPIUM [Concomitant]
     Active Substance: ALBUTEROL\IPRATROPIUM
     Dosage: 1VIAL; Q4H; PRN
     Route: 055
     Dates: start: 20240227
  28. ZITHROMAX [Concomitant]
     Active Substance: AZITHROMYCIN DIHYDRATE
     Dosage: TAKE 1 TABLET BY MOUTH EVEN MONDAY, WEDNESDAY AND FRIDAY
     Route: 048
     Dates: start: 20241113
  29. VENTOLIN HFA [Concomitant]
     Active Substance: ALBUTEROL SULFATE
     Indication: Wheezing
     Dosage: 2DF; Q4H; PRN
     Dates: start: 20240628
  30. LIPITOR [Concomitant]
     Active Substance: ATORVASTATIN CALCIUM
     Dosage: 1DF; QD
     Route: 048
     Dates: start: 20240628, end: 20241125
  31. COZAAR [Concomitant]
     Active Substance: LOSARTAN POTASSIUM
     Dosage: 0.5DF; QD
     Route: 048
     Dates: start: 20240628, end: 20241125
  32. DALIRESP [Concomitant]
     Active Substance: ROFLUMILAST
     Dosage: TAKE 250 MCG (1/2 TAB) DAILY FOR ONE MONTH, IF ABLE TO TOLERATE CAN INCREASE TO 500 MCG (1 TAB) DAIL
     Dates: start: 20240916
  33. MUCUS RELIEF [Concomitant]
     Active Substance: GUAIFENESIN
     Dosage: 1DF; Q12H; PRN
     Route: 048
     Dates: start: 20241002
  34. MAGNESIUM OXIDE [Concomitant]
     Active Substance: MAGNESIUM OXIDE
     Dosage: 1DF; BID
     Route: 048
     Dates: start: 20240628
  35. ALDACTONE [Concomitant]
     Active Substance: SPIRONOLACTONE
     Dosage: 1DF; QD
     Route: 048
     Dates: start: 20240628
  36. ASPIRIN [Concomitant]
     Active Substance: ASPIRIN
     Dosage: 1DF; QD
     Route: 048
     Dates: start: 20240628
  37. GLUCOTROL XL [Concomitant]
     Active Substance: GLIPIZIDE
     Dosage: 1DF; BID
     Route: 048
     Dates: start: 20240703
  38. XYZAL [Concomitant]
     Active Substance: LEVOCETIRIZINE DIHYDROCHLORIDE
     Dosage: 1DF: QD
     Route: 048
     Dates: start: 20240628, end: 20241125
  39. BROVANA [Concomitant]
     Active Substance: ARFORMOTEROL TARTRATE
     Dosage: 2ML; BID
     Route: 055
     Dates: start: 20230925
  40. EPIPEN [Concomitant]
     Active Substance: EPINEPHRINE
     Indication: Hypersensitivity
     Dosage: 0.3ML; PRN
     Route: 030
     Dates: start: 20241015

REACTIONS (6)
  - Hyperhidrosis [Not Recovered/Not Resolved]
  - Feeling hot [Not Recovered/Not Resolved]
  - Gastritis [Not Recovered/Not Resolved]
  - Flatulence [Not Recovered/Not Resolved]
  - Abdominal distension [Not Recovered/Not Resolved]
  - Injection site pain [Unknown]
